FAERS Safety Report 5161736-0 (Version None)
Quarter: 2006Q4

REPORT INFORMATION
  Report Type: 
  Country: None (occurrence: None)
  Receive Date: 20061130
  Receipt Date: 20060914
  Transmission Date: 20070319
  Serious: Yes (Hospitalization)
  Sender: FDA-Public Use
  Company Number: FR-GLAXOSMITHKLINE-B0439218A

PATIENT
  Age: 60 Year
  Sex: Male
  Weight: 104 kg

DRUGS (9)
  1. ARIXTRA [Suspect]
     Indication: DEEP VEIN THROMBOSIS
     Dosage: 10MG PER DAY
     Route: 058
     Dates: start: 20060101, end: 20060501
  2. PREVISCAN [Suspect]
     Indication: DEEP VEIN THROMBOSIS
     Dosage: 1UNIT PER DAY
     Route: 048
     Dates: start: 20060101
  3. PLAVIX [Suspect]
     Dosage: 75MG PER DAY
     Route: 048
     Dates: end: 20060501
  4. BENAZEPRIL HCL [Concomitant]
     Route: 048
  5. ISOPTIN [Concomitant]
     Route: 048
  6. MEDIATENSYL [Concomitant]
     Route: 048
  7. PRAVASTATIN [Concomitant]
     Dosage: 20MG PER DAY
     Route: 048
  8. OLMESARTAN MEDOXOMIL [Concomitant]
  9. PHYSIOTENS [Concomitant]

REACTIONS (3)
  - MUSCLE HAEMORRHAGE [None]
  - PULMONARY EMBOLISM [None]
  - RETROPERITONEAL HAEMORRHAGE [None]
